FAERS Safety Report 19001056 (Version 1)
Quarter: 2021Q1

REPORT INFORMATION
  Report Type: Spontaneous
  Country: US (occurrence: US)
  Receive Date: 20210311
  Receipt Date: 20210311
  Transmission Date: 20210420
  Serious: No
  Sender: FDA-Public Use
  Company Number: None

PATIENT
  Age: 22 Year
  Sex: Female
  Weight: 57.15 kg

DRUGS (2)
  1. ICY HOT WITH LIDOCAINE [Suspect]
     Active Substance: LIDOCAINE\MENTHOL
     Indication: MYALGIA
     Route: 061
     Dates: start: 20210309, end: 20210309
  2. CLARITIN [Concomitant]
     Active Substance: LORATADINE

REACTIONS (3)
  - Skin burning sensation [None]
  - Discomfort [None]
  - Erythema [None]

NARRATIVE: CASE EVENT DATE: 20210311
